FAERS Safety Report 8478101-0 (Version None)
Quarter: 2012Q2

REPORT INFORMATION
  Report Type: 
  Country: None (occurrence: None)
  Receive Date: 20120629
  Receipt Date: 20120620
  Transmission Date: 20120825
  Serious: Yes (Hospitalization, Other)
  Sender: FDA-Public Use
  Company Number: US-JNJFOC-20120301079

PATIENT
  Sex: Female
  Weight: 68.95 kg

DRUGS (13)
  1. HUMULIN R [Concomitant]
     Indication: DIABETES MELLITUS
     Dosage: AS DIRECTED
     Route: 065
  2. MICARDIS [Concomitant]
     Route: 065
  3. ACETYLSALICYLIC ACID SRT [Concomitant]
     Indication: HYPERTENSION
     Route: 065
  4. LISINOPRIL [Concomitant]
     Route: 065
  5. REOPRO [Suspect]
     Indication: THROMBOSIS IN DEVICE
     Dosage: DRIP
     Route: 040
  6. PLAVIX [Suspect]
     Indication: STENT PLACEMENT
     Route: 065
  7. HEPARIN [Suspect]
     Indication: PRODUCT USED FOR UNKNOWN INDICATION
     Route: 065
  8. ANGIOMAX [Concomitant]
     Indication: PRODUCT USED FOR UNKNOWN INDICATION
     Route: 065
  9. LEXAPRO [Concomitant]
     Indication: DEPRESSION
     Route: 065
  10. HYDROCHLOROTHIAZIDE [Concomitant]
     Indication: HYPERTENSION
     Route: 065
  11. LEVEMIR [Concomitant]
     Indication: DIABETES MELLITUS
     Dosage: AS DIRECTED
     Route: 065
  12. SIMVASTATIN [Concomitant]
     Route: 065
  13. REOPRO [Suspect]
     Dosage: 10 MG/5ML, 5MLX1 VIAL AMPULE
     Route: 040
     Dates: start: 20120217

REACTIONS (3)
  - PETECHIAE [None]
  - THROMBOCYTOPENIA [None]
  - ECCHYMOSIS [None]
